FAERS Safety Report 10853559 (Version 1)
Quarter: 2015Q1

REPORT INFORMATION
  Report Type: Spontaneous
  Country: US (occurrence: None)
  Receive Date: 20150218
  Receipt Date: 20150218
  Transmission Date: 20150721
  Serious: No
  Sender: FDA-Public Use
  Company Number: None

PATIENT
  Age: 51 Year
  Sex: Male
  Weight: 81.65 kg

DRUGS (1)
  1. AZELASTINE HCL NASAL [Suspect]
     Active Substance: AZELASTINE HYDROCHLORIDE
     Indication: SINUS CONGESTION
     Dosage: 2 SPRAYS IN NOSTRIL 2 TIMES TWICE DAILY INHAKLATION
     Route: 055
     Dates: start: 20150210, end: 20150213

REACTIONS (2)
  - Abdominal pain [None]
  - Dysgeusia [None]

NARRATIVE: CASE EVENT DATE: 20150210
